FAERS Safety Report 20553330 (Version 1)
Quarter: 2022Q1

REPORT INFORMATION
  Report Type: Spontaneous
  Country: FR (occurrence: FR)
  Receive Date: 20220304
  Receipt Date: 20220304
  Transmission Date: 20220424
  Serious: Yes (Hospitalization, Congenital Anomaly, Other)
  Sender: FDA-Public Use
  Company Number: FR-ABBVIE-22K-056-4295761-00

PATIENT
  Sex: Female

DRUGS (1)
  1. VALPROATE SODIUM [Suspect]
     Active Substance: VALPROATE SODIUM
     Indication: Maternal exposure timing unspecified
     Route: 064

REACTIONS (33)
  - Dacryocystitis [Unknown]
  - Asthma [Unknown]
  - Foetal anticonvulsant syndrome [Unknown]
  - Mental impairment [Unknown]
  - Disturbance in social behaviour [Unknown]
  - Educational problem [Unknown]
  - Learning disability [Unknown]
  - Hypotonia neonatal [Unknown]
  - Balance disorder [Unknown]
  - Psychomotor retardation [Unknown]
  - Behaviour disorder [Unknown]
  - Prognathism [Unknown]
  - Telangiectasia congenital [Unknown]
  - Dysmorphism [Unknown]
  - Fine motor skill dysfunction [Unknown]
  - Hand-eye coordination impaired [Unknown]
  - Speech disorder developmental [Unknown]
  - Memory impairment [Unknown]
  - Foot deformity [Unknown]
  - Ear, nose and throat disorder [Unknown]
  - Partial seizures [Recovered/Resolved]
  - Audiogram abnormal [Unknown]
  - Haemangioma of skin [Unknown]
  - Gastrooesophageal reflux disease [Unknown]
  - X-ray limb abnormal [Unknown]
  - Conjunctivitis [Unknown]
  - Congenital anomaly [Unknown]
  - Talipes [Unknown]
  - Enuresis [Unknown]
  - Neurodevelopmental disorder [Unknown]
  - Bronchitis [Unknown]
  - Cognitive disorder [Unknown]
  - Foetal exposure during pregnancy [Unknown]

NARRATIVE: CASE EVENT DATE: 19981209
